FAERS Safety Report 6570796-1 (Version None)
Quarter: 2010Q1

REPORT INFORMATION
  Report Type: 
  Country: None (occurrence: None)
  Receive Date: 20100204
  Receipt Date: 20100129
  Transmission Date: 20100710
  Serious: Yes (Other)
  Sender: FDA-Public Use
  Company Number: DE-ABBOTT-09P-062-0591830-00

PATIENT
  Sex: Male

DRUGS (1)
  1. HUMIRA [Suspect]
     Indication: ANKYLOSING SPONDYLITIS
     Route: 058
     Dates: start: 20060616, end: 20091201

REACTIONS (4)
  - ANKYLOSING SPONDYLITIS [None]
  - ARTHROPOD BITE [None]
  - BORRELIA TEST POSITIVE [None]
  - VASCULITIS [None]
